FAERS Safety Report 8623085-5 (Version None)
Quarter: 2012Q3

REPORT INFORMATION
  Report Type: 
  Country: None (occurrence: None)
  Receive Date: 20120827
  Receipt Date: 20120823
  Transmission Date: 20120928
  Serious: Yes (Hospitalization)
  Sender: FDA-Public Use
  Company Number: US-AMGEN-USASP2012053446

PATIENT
  Age: 62 Year
  Sex: Female

DRUGS (1)
  1. ENBREL [Suspect]
     Indication: RHEUMATOID ARTHRITIS
     Dosage: 50 UNK, UNK
     Route: 058
     Dates: start: 20020101

REACTIONS (4)
  - KNEE ARTHROPLASTY [None]
  - VERTEBROPLASTY [None]
  - THERAPEUTIC RESPONSE DECREASED [None]
  - ADVERSE DRUG REACTION [None]
